FAERS Safety Report 15017035 (Version 1)
Quarter: 2018Q2

REPORT INFORMATION
  Report Type: Spontaneous
  Country: US (occurrence: US)
  Receive Date: 20180531
  Receipt Date: 20180531
  Transmission Date: 20180711
  Serious: Yes (Life-Threatening, Hospitalization)
  Sender: FDA-Public Use
  Company Number: None

PATIENT
  Sex: Female

DRUGS (1)
  1. CINVANTI [Suspect]
     Active Substance: APREPITANT
     Indication: NAUSEA
     Dosage: ?          QUANTITY:1 DF DOSAGE FORM;?

REACTIONS (3)
  - Anaphylactic reaction [None]
  - Off label use [None]
  - Incorrect route of drug administration [None]

NARRATIVE: CASE EVENT DATE: 20180530
